FAERS Safety Report 15406757 (Version 1)
Quarter: 2018Q3

REPORT INFORMATION
  Report Type: Spontaneous
  Country: FR (occurrence: FR)
  Receive Date: 20180920
  Receipt Date: 20180920
  Transmission Date: 20181010
  Serious: Yes (Hospitalization)
  Sender: FDA-Public Use
  Company Number: FR-PFIZER INC-2018371916

PATIENT
  Age: 86 Year
  Sex: Female

DRUGS (4)
  1. SKUDEXUM [Suspect]
     Active Substance: DEXKETOPROFEN\TRAMADOL
     Indication: PAIN
     Dosage: UNK
     Route: 048
     Dates: end: 20180711
  2. TRAMADOL. [Suspect]
     Active Substance: TRAMADOL
     Indication: PAIN
     Dosage: UNK
     Route: 048
     Dates: end: 20180711
  3. LYSANXIA [Suspect]
     Active Substance: PRAZEPAM
     Indication: ANXIETY
     Dosage: UNK
     Route: 048
     Dates: end: 20180711
  4. LYRICA [Suspect]
     Active Substance: PREGABALIN
     Indication: PAIN
     Dosage: 4 DF, 1X/DAY
     Route: 048
     Dates: end: 20180711

REACTIONS (2)
  - Vertigo [Recovered/Resolved]
  - Fall [Recovered/Resolved]

NARRATIVE: CASE EVENT DATE: 20180711
